FAERS Safety Report 8474432-9 (Version None)
Quarter: 2012Q2

REPORT INFORMATION
  Report Type: 
  Country: None (occurrence: None)
  Receive Date: 20120621
  Receipt Date: 20120607
  Transmission Date: 20120825
  Serious: Yes (Death, Hospitalization)
  Sender: FDA-Public Use
  Company Number: UTC-019758

PATIENT
  Age: 47 Year
  Sex: Female
  Weight: 34.5 kg

DRUGS (3)
  1. LETAIRIS [Concomitant]
  2. REMODULIN [Suspect]
     Indication: PULMONARY HYPERTENSION
     Dosage: 60.48 UG/KG (0.042 UG/KG, 1 IN MIN), INTRAVENOUS
     Dates: start: 20110216
  3. ADCIRCA [Concomitant]

REACTIONS (1)
  - DEATH [None]
